FAERS Safety Report 18559029 (Version 1)
Quarter: 2020Q4

REPORT INFORMATION
  Report Type: Spontaneous
  Country: US (occurrence: US)
  Receive Date: 20201130
  Receipt Date: 20201130
  Transmission Date: 20210114
  Serious: No
  Sender: FDA-Public Use
  Company Number: US-VIIV HEALTHCARE LIMITED-US2020AMR234124

PATIENT
  Age: 34 Year
  Sex: Male

DRUGS (1)
  1. DOVATO [Suspect]
     Active Substance: DOLUTEGRAVIR SODIUM\LAMIVUDINE
     Indication: HIV INFECTION
     Dosage: UNK
     Dates: start: 20200630

REACTIONS (3)
  - Blood triglycerides increased [Unknown]
  - Treatment noncompliance [Unknown]
  - Blood disorder [Unknown]

NARRATIVE: CASE EVENT DATE: 202008
